FAERS Safety Report 6391489-X (Version None)
Quarter: 2009Q4

REPORT INFORMATION
  Report Type: 
  Country: None (occurrence: None)
  Receive Date: 20091006
  Receipt Date: 20091006
  Transmission Date: 20100525
  Serious: Yes (Hospitalization, Other)
  Sender: FDA-Public Use
  Company Number: None

PATIENT
  Age: 38 Year
  Sex: Male
  Weight: 75 kg

DRUGS (1)
  1. PROPECIA [Suspect]
     Indication: ANDROGENETIC ALOPECIA
     Dosage: 1MG DAILY PO
     Route: 048
     Dates: start: 20071223, end: 20080111

REACTIONS (6)
  - BLOOD TESTOSTERONE DECREASED [None]
  - BREAST PAIN [None]
  - DIZZINESS [None]
  - ERECTILE DYSFUNCTION [None]
  - INCONTINENCE [None]
  - TESTICULAR DISORDER [None]
